FAERS Safety Report 18053197 (Version 1)
Quarter: 2020Q3

REPORT INFORMATION
  Report Type: Spontaneous
  Country: JP (occurrence: JP)
  Receive Date: 20200722
  Receipt Date: 20200722
  Transmission Date: 20201103
  Serious: Yes (Other)
  Sender: FDA-Public Use
  Company Number: JP-UNITED THERAPEUTICS-UNT-2020-010493

PATIENT
  Age: 32 Year
  Sex: Female

DRUGS (10)
  1. TADALAFIL. [Suspect]
     Active Substance: TADALAFIL
     Dosage: 10 MG, PER DAY
     Route: 065
  2. TADALAFIL. [Suspect]
     Active Substance: TADALAFIL
     Dosage: 40 MG, PER DAY
     Route: 065
  3. SELEXIPAG [Suspect]
     Active Substance: SELEXIPAG
     Dosage: UNK, DECREASED DOSE
     Route: 065
  4. REMODULIN [Suspect]
     Active Substance: TREPROSTINIL
     Indication: PRODUCT USED FOR UNKNOWN INDICATION
     Dosage: 0.010 ?G/KG, CONTINUING
     Route: 058
  5. REMODULIN [Suspect]
     Active Substance: TREPROSTINIL
     Dosage: 0.005 ?G/KG, CONTINUING
     Route: 058
  6. SELEXIPAG [Suspect]
     Active Substance: SELEXIPAG
     Indication: PRODUCT USED FOR UNKNOWN INDICATION
     Dosage: 3.6 MG, PER DAY
     Route: 065
  7. MACITENTAN [Suspect]
     Active Substance: MACITENTAN
     Indication: PRODUCT USED FOR UNKNOWN INDICATION
     Dosage: 10 MG, PER DAY
     Route: 065
  8. EPOPROSTENOL. [Suspect]
     Active Substance: EPOPROSTENOL
     Indication: PRODUCT USED FOR UNKNOWN INDICATION
     Dosage: UNK
     Route: 041
  9. EPOPROSTENOL. [Suspect]
     Active Substance: EPOPROSTENOL
     Dosage: 10 NG/KG/MIN, UNK
     Route: 041
  10. TADALAFIL. [Suspect]
     Active Substance: TADALAFIL
     Indication: PRODUCT USED FOR UNKNOWN INDICATION
     Dosage: UNK
     Route: 065

REACTIONS (3)
  - Cardiac tamponade [Unknown]
  - Pulmonary artery dilatation [Unknown]
  - Device related thrombosis [Unknown]
